FAERS Safety Report 5895054-X (Version None)
Quarter: 2008Q3

REPORT INFORMATION
  Report Type: 
  Country: None (occurrence: None)
  Receive Date: 20080922
  Receipt Date: 20080911
  Transmission Date: 20090109
  Serious: Yes (Other)
  Sender: FDA-Public Use
  Company Number: CHNY2008DE03274

PATIENT
  Age: 29 Year
  Sex: Female
  Weight: 60 kg

DRUGS (2)
  1. SCOPOLAMINE [Suspect]
     Indication: MOTION SICKNESS
     Dosage: TRANDERMAL
     Route: 062
     Dates: start: 20080827, end: 20080830
  2. FEMIGOA (ETHINYLESTRADIOL, EVONORGESTREL) [Concomitant]

REACTIONS (6)
  - BALANCE DISORDER [None]
  - DIZZINESS [None]
  - FEELING HOT [None]
  - NAUSEA [None]
  - TREMOR [None]
  - VISUAL IMPAIRMENT [None]
